FAERS Safety Report 16430297 (Version 1)
Quarter: 2019Q2

REPORT INFORMATION
  Report Type: Spontaneous
  Country: SE (occurrence: SE)
  Receive Date: 20190614
  Receipt Date: 20190614
  Transmission Date: 20190711
  Serious: Yes (Other)
  Sender: FDA-Public Use
  Company Number: SE-SUN PHARMACEUTICAL INDUSTRIES LTD-2019RR-210397

PATIENT
  Age: 76 Year
  Sex: Female

DRUGS (19)
  1. PRIMPERAN 10 MG TABLETT [Concomitant]
     Indication: PRODUCT USED FOR UNKNOWN INDICATION
     Dosage: 1  TABLETT VID BEHOV, H?GST 3 TABLETTER PER DYGN
     Route: 065
     Dates: start: 20171127
  2. CALCICHEW-D3 CITRON 500 MG/400 IE TUGGTABLETT [Concomitant]
     Indication: PRODUCT USED FOR UNKNOWN INDICATION
     Dosage: 2 DOSAGE FORM, DAILY
     Route: 065
     Dates: start: 20190409
  3. SPIRIVA RESPIMAT 2,5 MIKROGRAM INHALATIONSVATSKA, LOSNING [Concomitant]
     Indication: PRODUCT USED FOR UNKNOWN INDICATION
     Dosage: 5 MICROGRAM, DAILY
     Route: 055
     Dates: start: 20171128
  4. BRICANYL TURBUHALER 0,25 MG/DOS INHALATIONSPULVER [Concomitant]
     Indication: PRODUCT USED FOR UNKNOWN INDICATION
     Dosage: 1-2 INHALATION VID BEHOV
     Route: 055
     Dates: start: 20171127
  5. PANTOPRAZOLE [Concomitant]
     Active Substance: PANTOPRAZOLE
     Indication: PRODUCT USED FOR UNKNOWN INDICATION
     Dosage: 40 MILLIGRAM, DAILY
     Route: 065
     Dates: start: 20190328
  6. FOLACIN 1 MG TABLETT [Concomitant]
     Indication: PRODUCT USED FOR UNKNOWN INDICATION
     Dosage: 1 MILLIGRAM, DAILY
     Dates: start: 20171128
  7. MOVICOL  PULVER TILL ORAL LOSNING I DOSPASE [Concomitant]
     Indication: PRODUCT USED FOR UNKNOWN INDICATION
     Dosage: 1 DOSPASE VID BEHOV, HOGST 1 DOSPASE PER DYGN
     Route: 048
     Dates: start: 20171127
  8. STILNOCT 5 MG FILMDRAGERAD TABLETT [Concomitant]
     Active Substance: ZOLPIDEM TARTRATE
     Indication: PRODUCT USED FOR UNKNOWN INDICATION
     Dosage: 0,5 TABLETT VID BEHOV
     Route: 065
     Dates: start: 20190211
  9. CILAXORAL 7,5 MG/ML ORALA DROPPAR, LOSNING [Concomitant]
     Indication: PRODUCT USED FOR UNKNOWN INDICATION
     Dosage: 10-20 DROPPAR TILL NATTEN VID BEHOV HOGST 20 DROPPAR PER DYGN
     Route: 065
     Dates: start: 20180406
  10. RAMIPRIL. [Concomitant]
     Active Substance: RAMIPRIL
     Indication: PRODUCT USED FOR UNKNOWN INDICATION
     Dosage: 5 MILLIGRAM, DAILY
     Route: 065
     Dates: start: 20180406
  11. CITALOPRAM [Concomitant]
     Active Substance: CITALOPRAM HYDROBROMIDE
     Indication: PRODUCT USED FOR UNKNOWN INDICATION
     Dosage: 40 MILLIGRAM, DAILY
     Route: 065
     Dates: start: 20171128
  12. TAVEGYL 1 MG TABLETT [Concomitant]
     Indication: PRODUCT USED FOR UNKNOWN INDICATION
     Dosage: 1 TABLETT VID BEHOV, HOGST 2 TABLETTER PER DYGN
     Route: 065
     Dates: start: 20171127
  13. DUROFERON 100 MG FE2+ DEPOTTABLETT [Concomitant]
     Indication: PRODUCT USED FOR UNKNOWN INDICATION
     Dosage: 100 MILLIGRAM, DAILY
     Route: 065
     Dates: start: 20190118
  14. METOPROLOL. [Concomitant]
     Active Substance: METOPROLOL
     Indication: PRODUCT USED FOR UNKNOWN INDICATION
     Dosage: 25 MILLIGRAM, DAILY
     Route: 065
     Dates: start: 20171128
  15. PARACETAMOL/KODEIN [Concomitant]
     Indication: PRODUCT USED FOR UNKNOWN INDICATION
     Dosage: 1-2 TABLETT VID BEHOV, H?GST 8 TABLETTER PER DYGN
     Route: 065
     Dates: start: 20190409
  16. SYMBICORT FORTE TURBUHALER 320 MIKROGRAM/9 MIKROGRAM/INHALATION INHALA [Concomitant]
     Indication: PRODUCT USED FOR UNKNOWN INDICATION
     Dosage: 2 DOSAGE FORM, DAILY
     Route: 055
     Dates: start: 20171127
  17. ALENDRONIC ACID [Suspect]
     Active Substance: ALENDRONIC ACID
     Indication: OSTEOPOROSIS
     Dosage: 70 MILLIGRAM, WEEKLY
     Route: 065
     Dates: start: 20190409
  18. WARAN 2,5 MG TABLETT [Concomitant]
     Indication: PRODUCT USED FOR UNKNOWN INDICATION
     Dosage: DOSERAS EFTER SVAR PA BLODPROV PK-INR
     Route: 065
     Dates: start: 20180909
  19. EMERADE 500 MIKROGRAM INJEKTIONSVATSKA, LOSNING I FORFYLLD INJEKTIONSP [Concomitant]
     Indication: PRODUCT USED FOR UNKNOWN INDICATION
     Dosage: 1 FORFYLLD PENNA VID HEHOV
     Route: 030
     Dates: start: 20171127

REACTIONS (2)
  - Cough [Unknown]
  - Dyspnoea [Unknown]

NARRATIVE: CASE EVENT DATE: 2019
